FAERS Safety Report 9472403 (Version 1)
Quarter: 2013Q3

REPORT INFORMATION
  Report Type: Spontaneous
  Country: FR (occurrence: FR)
  Receive Date: 20130823
  Receipt Date: 20130823
  Transmission Date: 20140515
  Serious: Yes (Death)
  Sender: FDA-Public Use
  Company Number: FR-PFIZER INC-2013241287

PATIENT
  Age: 81 Year
  Sex: Female

DRUGS (1)
  1. CRIZOTINIB [Suspect]
     Dosage: UNK
     Dates: start: 20120527, end: 20130222

REACTIONS (1)
  - Death [Fatal]
